FAERS Safety Report 15015887 (Version 1)
Quarter: 2018Q2

REPORT INFORMATION
  Report Type: Spontaneous
  Country: US (occurrence: US)
  Receive Date: 20180615
  Receipt Date: 20180615
  Transmission Date: 20180711
  Serious: Yes (Other)
  Sender: FDA-Public Use
  Company Number: US-AUROBINDO-AUR-APL-2018-031316

PATIENT
  Age: 74 Year
  Sex: Female

DRUGS (9)
  1. CITALOPRAM [Suspect]
     Active Substance: CITALOPRAM HYDROBROMIDE
     Indication: DEMENTIA
     Dosage: 20 MILLIGRAM, DAILY
     Route: 065
  2. MEMANTINE. [Suspect]
     Active Substance: MEMANTINE
     Indication: DEMENTIA
  3. DONEPEZIL. [Suspect]
     Active Substance: DONEPEZIL
     Indication: DEMENTIA
  4. MEMANTINE. [Suspect]
     Active Substance: MEMANTINE
     Indication: DEMENTIA ALZHEIMER^S TYPE
     Dosage: 10 MILLIGRAM
     Route: 065
  5. MEMANTINE. [Suspect]
     Active Substance: MEMANTINE
     Indication: DEPRESSION
  6. CITALOPRAM [Suspect]
     Active Substance: CITALOPRAM HYDROBROMIDE
     Indication: DEPRESSION
  7. CITALOPRAM [Suspect]
     Active Substance: CITALOPRAM HYDROBROMIDE
     Indication: DEMENTIA ALZHEIMER^S TYPE
     Dosage: 30 MILLIGRAM
     Route: 065
  8. DONEPEZIL. [Suspect]
     Active Substance: DONEPEZIL
     Indication: DEMENTIA ALZHEIMER^S TYPE
     Dosage: 10 MILLIGRAM
     Route: 065
  9. DONEPEZIL. [Suspect]
     Active Substance: DONEPEZIL
     Indication: DEPRESSION

REACTIONS (2)
  - Bradycardia [Recovering/Resolving]
  - Electrocardiogram QT prolonged [Recovering/Resolving]
